FAERS Safety Report 12240758 (Version 1)
Quarter: 2016Q2

REPORT INFORMATION
  Report Type: Report from Study
  Country: US (occurrence: US)
  Receive Date: 20160406
  Receipt Date: 20160406
  Transmission Date: 20160815
  Serious: Yes (Hospitalization, Disabling)
  Sender: FDA-Public Use
  Company Number: US-GILEAD-2016-0192858

PATIENT
  Age: 69 Year
  Sex: Male
  Weight: 105.21 kg

DRUGS (12)
  1. METOLAZONE. [Concomitant]
     Active Substance: METOLAZONE
  2. ALDACTONE [Concomitant]
     Active Substance: SPIRONOLACTONE
  3. ORENITRAM [Suspect]
     Active Substance: TREPROSTINIL
     Dosage: 0.125 UNK, TID
     Route: 048
     Dates: start: 201511
  4. REVATIO [Concomitant]
     Active Substance: SILDENAFIL CITRATE
  5. PRILOSEC [Concomitant]
     Active Substance: OMEPRAZOLE MAGNESIUM
  6. COREG [Concomitant]
     Active Substance: CARVEDILOL
  7. ALLOPURINOL. [Concomitant]
     Active Substance: ALLOPURINOL
  8. ORENITRAM [Suspect]
     Active Substance: TREPROSTINIL
     Indication: PRODUCT USED FOR UNKNOWN INDICATION
     Dosage: 0.625 MG, TID
     Route: 048
  9. ADCIRCA [Concomitant]
     Active Substance: TADALAFIL
  10. SILDENAFIL. [Suspect]
     Active Substance: SILDENAFIL
     Indication: PRODUCT USED FOR UNKNOWN INDICATION
     Route: 065
  11. LASIX [Concomitant]
     Active Substance: FUROSEMIDE
  12. AMBRISENTAN [Suspect]
     Active Substance: AMBRISENTAN
     Indication: PULMONARY ARTERIAL HYPERTENSION
     Dosage: 10 MG, QD
     Route: 048
     Dates: start: 20120301

REACTIONS (5)
  - Insomnia [Unknown]
  - Headache [Unknown]
  - Hypoxia [Recovered/Resolved]
  - Migraine [Recovered/Resolved]
  - Diarrhoea [Unknown]

NARRATIVE: CASE EVENT DATE: 20160212
